FAERS Safety Report 7625021-7 (Version None)
Quarter: 2011Q3

REPORT INFORMATION
  Report Type: 
  Country: None (occurrence: None)
  Receive Date: 20110721
  Receipt Date: 20110712
  Transmission Date: 20111222
  Serious: No
  Sender: FDA-Public Use
  Company Number: US-BIOGENIDEC-2011BI006827

PATIENT
  Age: 48 Year
  Sex: Female

DRUGS (1)
  1. TYSABRI [Suspect]
     Indication: MULTIPLE SCLEROSIS
     Route: 042
     Dates: start: 20081105

REACTIONS (7)
  - CYST [None]
  - MEMORY IMPAIRMENT [None]
  - EAR INFECTION [None]
  - HOUSE DUST ALLERGY [None]
  - FATIGUE [None]
  - CHRONIC SINUSITIS [None]
  - BALANCE DISORDER [None]
